FAERS Safety Report 4665963-8 (Version None)
Quarter: 2005Q2

REPORT INFORMATION
  Report Type: 
  Country: None (occurrence: None)
  Receive Date: 20050517
  Receipt Date: 20050117
  Transmission Date: 20051028
  Serious: Yes (Other)
  Sender: FDA-Public Use
  Company Number: S04-USA-07714-01

PATIENT
  Age: 73 Year
  Sex: Female

DRUGS (12)
  1. NAMENDA [Suspect]
     Indication: DEMENTIA
     Dosage: 5 MG QD PO
     Route: 048
     Dates: start: 20041119, end: 20041125
  2. NAMENDA [Suspect]
     Indication: DEPRESSION
     Dosage: 5 MG QD PO
     Route: 048
     Dates: start: 20041119, end: 20041125
  3. NAMENDA [Suspect]
     Indication: DEMENTIA
     Dosage: 5 MG BID PO
     Route: 048
     Dates: start: 20041126, end: 20041202
  4. NAMENDA [Suspect]
     Indication: DEPRESSION
     Dosage: 5 MG BID PO
     Route: 048
     Dates: start: 20041126, end: 20041202
  5. NAMENDA [Suspect]
     Indication: DEMENTIA
     Dosage: 15 MG QD PO
     Route: 048
     Dates: start: 20041203, end: 20041215
  6. NAMENDA [Suspect]
     Indication: DEPRESSION
     Dosage: 15 MG QD PO
     Route: 048
     Dates: start: 20041203, end: 20041215
  7. CYMBALTA [Concomitant]
  8. EXELON [Concomitant]
  9. SPIRONOLACTONE [Concomitant]
  10. CRESTOR [Concomitant]
  11. NEXIUM [Concomitant]
  12. REMERON [Concomitant]

REACTIONS (4)
  - FALL [None]
  - FRACTURE [None]
  - MUSCULAR WEAKNESS [None]
  - RIB FRACTURE [None]
